FAERS Safety Report 15752509 (Version 2)
Quarter: 2019Q1

REPORT INFORMATION
  Report Type: Spontaneous
  Country: US (occurrence: US)
  Receive Date: 20181221
  Receipt Date: 20190226
  Transmission Date: 20190417
  Serious: Yes (Other)
  Sender: FDA-Public Use
  Company Number: US-UPSHER-SMITH LABORATORIES, LLC-2018USL00602

PATIENT
  Age: 1 Year
  Sex: Male
  Weight: 9.98 kg

DRUGS (3)
  1. VIGADRONE [Suspect]
     Active Substance: VIGABATRIN
     Indication: SEIZURE
     Dosage: 250 MG, 2X/DAY (MORNING AND AFTERNOON)
     Route: 048
     Dates: start: 20181114, end: 20181122
  2. VIGADRONE [Suspect]
     Active Substance: VIGABATRIN
     Dosage: 750 MG, 2X/DAY
     Route: 048
  3. VIGADRONE [Suspect]
     Active Substance: VIGABATRIN
     Indication: INFANTILE SPASMS
     Dosage: 250 MG, 2X/DAY (MORNING AND AFTERNOON)
     Route: 048
     Dates: start: 20181130

REACTIONS (11)
  - Seizure [Not Recovered/Not Resolved]
  - Rash papular [Recovered/Resolved]
  - Pyrexia [Recovered/Resolved]
  - Hypophagia [Recovered/Resolved]
  - Weight decreased [Recovered/Resolved]
  - Cough [Unknown]
  - Urine output decreased [Unknown]
  - Gastritis viral [Unknown]
  - Dehydration [Unknown]
  - Vomiting [Recovered/Resolved]
  - Nasal congestion [Unknown]

NARRATIVE: CASE EVENT DATE: 2018
